FAERS Safety Report 7641546-2 (Version None)
Quarter: 2011Q3

REPORT INFORMATION
  Report Type: 
  Country: None (occurrence: None)
  Receive Date: 20110728
  Receipt Date: 20110718
  Transmission Date: 20111222
  Serious: Yes (Other)
  Sender: FDA-Public Use
  Company Number: FR-JNJFOC-20110610409

PATIENT
  Sex: Male
  Weight: 60 kg

DRUGS (6)
  1. CORTICOSTEROIDS [Suspect]
     Indication: PRODUCT USED FOR UNKNOWN INDICATION
     Route: 065
  2. ABIRATERONE ACETATE [Suspect]
     Route: 048
     Dates: start: 20110601
  3. PREDNISONE TAB [Suspect]
     Route: 048
  4. ABIRATERONE ACETATE [Suspect]
     Indication: PROSTATE CANCER
     Route: 048
     Dates: start: 20110401
  5. INSULIN [Concomitant]
     Indication: PRODUCT USED FOR UNKNOWN INDICATION
     Route: 065
  6. PREDNISONE TAB [Suspect]
     Indication: PROSTATE CANCER
     Route: 048

REACTIONS (5)
  - MALAISE [None]
  - DRUG ADMINISTRATION ERROR [None]
  - PROSTATIC SPECIFIC ANTIGEN INCREASED [None]
  - HYPERGLYCAEMIA [None]
  - GENERAL PHYSICAL HEALTH DETERIORATION [None]
